FAERS Safety Report 15997742 (Version 1)
Quarter: 2019Q1

REPORT INFORMATION
  Report Type: Spontaneous
  Country: US (occurrence: US)
  Receive Date: 20190222
  Receipt Date: 20190222
  Transmission Date: 20190418
  Serious: Yes (Other)
  Sender: FDA-Public Use
  Company Number: US-BAUSCH-BL-2019-005547

PATIENT
  Age: 71 Year
  Sex: Female

DRUGS (4)
  1. RELISTOR [Suspect]
     Active Substance: METHYLNALTREXONE BROMIDE
     Dosage: STRENGTH: 12/0.6ML INJ. 0.6 (VIAL)
     Route: 058
     Dates: start: 201902
  2. RELISTOR [Suspect]
     Active Substance: METHYLNALTREXONE BROMIDE
     Indication: CONSTIPATION
     Dosage: STRENGTH: 12/0.6ML INJ. 0.6 (VIAL)?USING FOR 8-9 YEARS. B-D SAFETY-LOK SYRINGE.
     Route: 058
     Dates: end: 201902
  3. MIRALAX [Concomitant]
     Active Substance: POLYETHYLENE GLYCOL 3350
     Indication: PRODUCT USED FOR UNKNOWN INDICATION
     Dosage: EVERY MORNING.
  4. OXYCONTIN [Concomitant]
     Active Substance: OXYCODONE HYDROCHLORIDE
     Indication: PRODUCT USED FOR UNKNOWN INDICATION

REACTIONS (6)
  - Defaecation disorder [Recovered/Resolved]
  - Therapy cessation [Recovered/Resolved]
  - Rectal prolapse [Recovering/Resolving]
  - Anorectal disorder [Recovering/Resolving]
  - Abdominal pain [Recovering/Resolving]
  - Insurance issue [Recovered/Resolved]

NARRATIVE: CASE EVENT DATE: 201902
